FAERS Safety Report 24661563 (Version 5)
Quarter: 2025Q3

REPORT INFORMATION
  Report Type: Report from Study
  Country: US (occurrence: US)
  Receive Date: 20241125
  Receipt Date: 20250715
  Transmission Date: 20251021
  Serious: Yes (Hospitalization)
  Sender: PFIZER
  Company Number: US-PFIZER INC-PV202400151880

PATIENT
  Age: 66 Year
  Sex: Female
  Weight: 50.43 kg

DRUGS (27)
  1. ADRIAMYCIN [Suspect]
     Active Substance: DOXORUBICIN HYDROCHLORIDE
     Indication: Retroperitoneal cancer
     Dates: start: 20240912, end: 20240914
  2. INVESTIGATIONAL PRODUCT [Suspect]
     Active Substance: INVESTIGATIONAL PRODUCT
     Indication: Cardiovascular disorder
     Route: 058
     Dates: start: 20220601
  3. IFEX [Suspect]
     Active Substance: IFOSFAMIDE
     Indication: Retroperitoneal cancer
     Dates: start: 20240912, end: 20240915
  4. MESNEX [Suspect]
     Active Substance: MESNA
     Indication: Retroperitoneal cancer
     Dates: start: 20240912, end: 20240916
  5. ZOLOFT [Concomitant]
     Active Substance: SERTRALINE HYDROCHLORIDE
     Dates: start: 2010
  6. ASPIRIN [Concomitant]
     Active Substance: ASPIRIN
     Dates: start: 20220214
  7. METOPROLOL [Concomitant]
     Active Substance: METOPROLOL
     Dates: start: 20220214
  8. ZOFRAN [Concomitant]
     Active Substance: ONDANSETRON HYDROCHLORIDE
     Dates: start: 20240623
  9. APREPITANT [Concomitant]
     Active Substance: APREPITANT
     Dates: start: 20240912, end: 20240912
  10. DEXAMETHASONE [Concomitant]
     Active Substance: DEXAMETHASONE
     Dates: start: 20240912, end: 20240915
  11. CALCIUM CARBONATE [Concomitant]
     Active Substance: CALCIUM CARBONATE
     Dates: start: 20240913, end: 20240928
  12. FAMOTIDINE [Concomitant]
     Active Substance: FAMOTIDINE
     Dates: start: 20240913, end: 20240926
  13. METOCLOPRAMIDE [Concomitant]
     Active Substance: METOCLOPRAMIDE
     Dates: start: 20240913, end: 20240913
  14. FUROSEMIDE [Concomitant]
     Active Substance: FUROSEMIDE
     Dates: start: 20240915, end: 20240915
  15. LACTULOSE [Concomitant]
     Active Substance: LACTULOSE
     Dates: start: 20240915, end: 20240915
  16. MAGNESIUM HYDROXIDE [Concomitant]
     Active Substance: MAGNESIUM HYDROXIDE
     Dates: start: 20240915, end: 20240915
  17. ACETAMINOPHEN [Concomitant]
     Active Substance: ACETAMINOPHEN
     Dates: start: 20240916, end: 20241005
  18. MIRALAX [Concomitant]
     Active Substance: POLYETHYLENE GLYCOL 3350
     Dates: start: 20240914, end: 20240917
  19. LIPITOR [Concomitant]
     Active Substance: ATORVASTATIN CALCIUM
     Dates: start: 20220321
  20. MORPHINE [Concomitant]
     Active Substance: MORPHINE
     Dates: start: 20240915, end: 20240915
  21. MINERAL OIL [Concomitant]
     Active Substance: MINERAL OIL
     Dates: start: 20240915, end: 20240915
  22. PROCHLORPERAZINE EDISYLATE [Concomitant]
     Active Substance: PROCHLORPERAZINE EDISYLATE
     Dates: start: 20240915, end: 20240915
  23. SENNA LEAF [Concomitant]
     Active Substance: SENNA LEAF
     Dates: start: 20240915, end: 20240915
  24. SODIUM CHLORIDE [Concomitant]
     Active Substance: SODIUM CHLORIDE
     Dates: start: 20240913, end: 20240916
  25. BISMUTH SUBSALICYLATE [Concomitant]
     Active Substance: BISMUTH SUBSALICYLATE
     Dates: start: 20240913, end: 20240914
  26. BISACODYL [Concomitant]
     Active Substance: BISACODYL
     Dates: start: 20240915, end: 20240915
  27. ENOXAPARIN [Concomitant]
     Active Substance: ENOXAPARIN
     Dates: start: 20240915, end: 20240917

REACTIONS (1)
  - Neurotoxicity [Recovered/Resolved]

NARRATIVE: CASE EVENT DATE: 20240916
